FAERS Safety Report 19634373 (Version 1)
Quarter: 2021Q3

REPORT INFORMATION
  Report Type: Spontaneous
  Country: CA (occurrence: CA)
  Receive Date: 20210730
  Receipt Date: 20210730
  Transmission Date: 20211014
  Serious: Yes (Hospitalization)
  Sender: FDA-Public Use
  Company Number: CA-ROCHE-2878731

PATIENT
  Age: 48 Year
  Sex: Female

DRUGS (16)
  1. IRON [Concomitant]
     Active Substance: IRON
  2. CALCIUM [Concomitant]
     Active Substance: CALCIUM
  3. NAPROXEN. [Concomitant]
     Active Substance: NAPROXEN
  4. PREDNISONE. [Concomitant]
     Active Substance: PREDNISONE
     Indication: PREMEDICATION
     Route: 065
  5. ACETAMINOPHEN. [Concomitant]
     Active Substance: ACETAMINOPHEN
     Indication: PREMEDICATION
     Route: 048
  6. METHOTREXATE. [Concomitant]
     Active Substance: METHOTREXATE
     Route: 037
  7. RITUXIMAB. [Suspect]
     Active Substance: RITUXIMAB
     Indication: RHEUMATOID ARTHRITIS
     Route: 042
  8. ATACAND [Concomitant]
     Active Substance: CANDESARTAN CILEXETIL
  9. PROGESTERONE. [Concomitant]
     Active Substance: PROGESTERONE
  10. SYNTHROID [Concomitant]
     Active Substance: LEVOTHYROXINE SODIUM
  11. ELIQUIS [Concomitant]
     Active Substance: APIXABAN
     Route: 065
  12. FOLIC ACID. [Concomitant]
     Active Substance: FOLIC ACID
  13. LOSEC [Concomitant]
     Active Substance: OMEPRAZOLE
  14. SERTRALINE HYDROCHLORIDE. [Concomitant]
     Active Substance: SERTRALINE HYDROCHLORIDE
     Indication: DEPRESSION
  15. SULFASALAZINE. [Concomitant]
     Active Substance: SULFASALAZINE
  16. DIPHENHYDRAMINE. [Concomitant]
     Active Substance: DIPHENHYDRAMINE
     Indication: PREMEDICATION
     Route: 048

REACTIONS (2)
  - Atrial flutter [Unknown]
  - Heart rate decreased [Unknown]
